FAERS Safety Report 11201425 (Version 1)
Quarter: 2015Q2

REPORT INFORMATION
  Report Type: Spontaneous
  Country: GB (occurrence: None)
  Receive Date: 20150617
  Receipt Date: 20150617
  Transmission Date: 20150821
  Serious: Yes (Other)
  Sender: FDA-Public Use
  Company Number: GB-DEXPHARM-20150519

PATIENT
  Age: 37 Year
  Sex: Male

DRUGS (3)
  1. MIRTAZAPINE (LAST PRESCRIPTION ISSUED IN MARCH) TABLET MIRTAZAPINE [Suspect]
     Active Substance: MIRTAZAPINE
     Indication: DEPRESSION
     Dosage: DOSE: 15 MG MILLGRAM(S) ?SEP. DOSAGES/INTERVAL:  IN 1 DAYS
     Route: 048
  2. OMEPRAZOLE. [Suspect]
     Active Substance: OMEPRAZOLE
     Route: 048
  3. METHADONE [Concomitant]
     Active Substance: METHADONE HYDROCHLORIDE

REACTIONS (1)
  - Platelet count decreased [None]
